FAERS Safety Report 9807506 (Version 1)
Quarter: 2014Q1

REPORT INFORMATION
  Report Type: Spontaneous
  Country: US (occurrence: US)
  Receive Date: 20140110
  Receipt Date: 20140110
  Transmission Date: 20141002
  Serious: No
  Sender: FDA-Public Use
  Company Number: US-SA-2013SA104727

PATIENT
  Age: 30 Year
  Sex: Male

DRUGS (1)
  1. PLAVIX [Suspect]
     Indication: ANEURYSM
     Route: 048

REACTIONS (1)
  - Platelet function test abnormal [Unknown]
